FAERS Safety Report 7604054-0 (Version None)
Quarter: 2011Q3

REPORT INFORMATION
  Report Type: 
  Country: None (occurrence: None)
  Receive Date: 20110712
  Receipt Date: 20110629
  Transmission Date: 20111222
  Serious: Yes (Other)
  Sender: FDA-Public Use
  Company Number: US-ROCHE-788947

PATIENT
  Sex: Male

DRUGS (2)
  1. PEGASYS [Suspect]
     Route: 058
     Dates: start: 20110408
  2. COPEGUS [Suspect]
     Route: 048
     Dates: start: 20110408

REACTIONS (2)
  - INGUINAL MASS [None]
  - NAUSEA [None]
